FAERS Safety Report 8531161-0 (Version None)
Quarter: 2012Q3

REPORT INFORMATION
  Report Type: 
  Country: None (occurrence: None)
  Receive Date: 20120723
  Receipt Date: 20120716
  Transmission Date: 20120928
  Serious: Yes (Other)
  Sender: FDA-Public Use
  Company Number: US-ASTRAZENECA-2011SE62358

PATIENT
  Age: 51 Year
  Sex: Female
  Weight: 77.1 kg

DRUGS (11)
  1. SEROQUEL XR [Suspect]
     Indication: NERVOUSNESS
     Route: 048
     Dates: start: 20110101
  2. ATENOLOL [Suspect]
     Indication: HYPERTENSION
     Dosage: TWO TIMES A DAY
     Route: 048
  3. PERCOCET [Concomitant]
     Indication: ANALGESIC THERAPY
     Dosage: 5/325 MG, THREE TIMES A DAY
     Dates: start: 20100101
  4. XANAX [Concomitant]
  5. AMBIEN [Concomitant]
     Indication: SLEEP DISORDER
     Dates: start: 20080101
  6. HYDROCHLOROTHIAZIDE [Concomitant]
     Indication: DIURETIC THERAPY
  7. SEROQUEL XR [Suspect]
     Indication: SLEEP DISORDER
     Route: 048
     Dates: start: 20110101
  8. XANAX [Concomitant]
     Indication: NERVOUSNESS
  9. ZOLOFT [Concomitant]
  10. GABAPENTIN [Concomitant]
  11. SEROQUEL XR [Suspect]
     Indication: MAJOR DEPRESSION
     Route: 048
     Dates: start: 20110101

REACTIONS (13)
  - PRURITUS [None]
  - STRESS [None]
  - LEARNING DISORDER [None]
  - APHAGIA [None]
  - RESTLESSNESS [None]
  - WITHDRAWAL SYNDROME [None]
  - AMNESIA [None]
  - HAEMORRHAGE [None]
  - DRUG DOSE OMISSION [None]
  - OFF LABEL USE [None]
  - PANIC ATTACK [None]
  - ANXIETY [None]
  - MALAISE [None]
